FAERS Safety Report 6633652-6 (Version None)
Quarter: 2010Q1

REPORT INFORMATION
  Report Type: 
  Country: None (occurrence: None)
  Receive Date: 20100312
  Receipt Date: 20100308
  Transmission Date: 20100710
  Serious: Yes (Hospitalization)
  Sender: FDA-Public Use
  Company Number: US-AMGEN-ICO248586

PATIENT
  Sex: Female

DRUGS (16)
  1. DARBEPOETIN ALFA [Suspect]
     Indication: RENAL FAILURE CHRONIC
     Route: 058
     Dates: start: 20060802, end: 20070926
  2. ASPIRIN [Concomitant]
     Route: 048
     Dates: start: 19990101
  3. CADUET [Concomitant]
     Route: 048
     Dates: start: 20070102
  4. CLONIDINE [Concomitant]
     Route: 048
     Dates: start: 20070719
  5. FUROSEMIDE [Concomitant]
     Route: 048
     Dates: start: 20070828
  6. HYDRALAZINE HCL [Concomitant]
     Route: 048
     Dates: start: 20070920
  7. JANUVIA [Concomitant]
     Route: 048
     Dates: start: 20070920
  8. METFORMIN HCL [Concomitant]
     Route: 048
     Dates: start: 20040101
  9. MULTI-VITAMINS [Concomitant]
     Route: 048
     Dates: start: 20040101
  10. NEXIUM [Concomitant]
     Route: 048
  11. ZOLOFT [Concomitant]
     Route: 048
     Dates: start: 19990101
  12. XALATAN [Concomitant]
  13. DARVOCET-N 100 [Concomitant]
     Route: 048
  14. LONITEN [Concomitant]
     Route: 048
  15. LOPRESSOR [Concomitant]
     Route: 048
  16. IMDUR [Concomitant]
     Route: 048

REACTIONS (2)
  - CARDIAC FAILURE [None]
  - HYPERTENSIVE EMERGENCY [None]
